FAERS Safety Report 23404889 (Version 4)
Quarter: 2025Q3

REPORT INFORMATION
  Report Type: Spontaneous
  Country: US (occurrence: US)
  Receive Date: 20240116
  Receipt Date: 20250812
  Transmission Date: 20251020
  Serious: No
  Sender: BAYER HEALTHCARE PHARMACEUTICALS INC.
  Company Number: US-BAYER-2024A000960

PATIENT
  Age: 78 Year
  Sex: Male

DRUGS (8)
  1. NUBEQA [Suspect]
     Active Substance: DAROLUTAMIDE
     Indication: Prostate cancer
  2. ORGOVYX [Suspect]
     Active Substance: RELUGOLIX
     Indication: Prostate cancer
     Dosage: 120 MG DAILY
     Route: 048
     Dates: start: 20230509, end: 20230509
  3. ORGOVYX [Suspect]
     Active Substance: RELUGOLIX
     Indication: Prostate cancer
     Dosage: 120 MG, QD
     Route: 048
     Dates: start: 20230510
  4. ORGOVYX [Suspect]
     Active Substance: RELUGOLIX
     Indication: Prostate cancer
     Dosage: 120 MG, QD
     Route: 048
  5. ORGOVYX [Suspect]
     Active Substance: RELUGOLIX
     Indication: Prostate cancer
     Route: 048
  6. XTANDI [Suspect]
     Active Substance: ENZALUTAMIDE
     Indication: Prostate cancer
  7. RELUGOLIX [Concomitant]
     Active Substance: RELUGOLIX
  8. TESTOSTERONE [Concomitant]
     Active Substance: TESTOSTERONE

REACTIONS (7)
  - Nerve injury [Recovering/Resolving]
  - Gait disturbance [Unknown]
  - Fall [Unknown]
  - Asthenia [Not Recovered/Not Resolved]
  - Rash [Unknown]
  - Hypoaesthesia [None]
  - Sensory loss [Recovering/Resolving]
